FAERS Safety Report 19417790 (Version 4)
Quarter: 2021Q3

REPORT INFORMATION
  Report Type: Spontaneous
  Country: US (occurrence: US)
  Receive Date: 20210615
  Receipt Date: 20210910
  Transmission Date: 20211014
  Serious: Yes (Hospitalization, Other)
  Sender: FDA-Public Use
  Company Number: US-UNITED THERAPEUTICS-UNT-2021-009033

PATIENT
  Age: 64 Year
  Sex: Female
  Weight: 77.1 kg

DRUGS (7)
  1. REMODULIN [Suspect]
     Active Substance: TREPROSTINIL
     Dosage: 0.018 ?G/KG, CONTINUING
     Route: 058
     Dates: start: 2021
  2. REMODULIN [Suspect]
     Active Substance: TREPROSTINIL
     Dosage: 0.006 ?G/KG, CONTINUING
     Route: 058
     Dates: start: 202105, end: 202105
  3. REMODULIN [Suspect]
     Active Substance: TREPROSTINIL
     Dosage: 0.012 ?G/KG, CONTINUING
     Route: 058
     Dates: start: 2021
  4. XARELTO [Concomitant]
     Active Substance: RIVAROXABAN
     Indication: PRODUCT USED FOR UNKNOWN INDICATION
     Dosage: UNK
     Route: 065
  5. REMODULIN [Suspect]
     Active Substance: TREPROSTINIL
     Indication: PULMONARY ARTERIAL HYPERTENSION
     Dosage: 0.002 ?G/KG, CONTINUING
     Route: 058
     Dates: start: 20210511, end: 202105
  6. REMODULIN [Suspect]
     Active Substance: TREPROSTINIL
     Dosage: 0.014 ?G/KG, CONTINUING
     Route: 058
     Dates: start: 20210621
  7. REMODULIN [Suspect]
     Active Substance: TREPROSTINIL
     Dosage: 0.004 ?G/KG, CONTINUING
     Route: 058
     Dates: start: 202105, end: 202105

REACTIONS (17)
  - Sepsis [Unknown]
  - Pulmonary oedema [Unknown]
  - Abdominal pain [Unknown]
  - Ovarian cancer [Unknown]
  - Metastases to lung [Unknown]
  - Fatigue [Unknown]
  - Rhinorrhoea [Unknown]
  - Vaginal haemorrhage [Unknown]
  - Urinary tract infection [Unknown]
  - Headache [Not Recovered/Not Resolved]
  - Nausea [Unknown]
  - Infusion site erythema [Unknown]
  - Scratch [Unknown]
  - Pleural effusion [Unknown]
  - Infusion site pain [Unknown]
  - Skin abrasion [Unknown]
  - Rash [Unknown]

NARRATIVE: CASE EVENT DATE: 2021
